FAERS Safety Report 4340040-4 (Version None)
Quarter: 2004Q2

REPORT INFORMATION
  Report Type: 
  Country: None (occurrence: None)
  Receive Date: 20040416
  Receipt Date: 20040304
  Transmission Date: 20050107
  Serious: Yes (Hospitalization)
  Sender: FDA-Public Use
  Company Number: FR-ROCHE-360745

PATIENT
  Age: 50 Year
  Sex: Male
  Weight: 88 kg

DRUGS (4)
  1. PEGASYS [Suspect]
     Indication: HEPATITIS C
     Route: 058
     Dates: start: 20040107
  2. PEGASYS [Suspect]
     Route: 058
  3. COPEGUS [Suspect]
     Indication: HEPATITIS C
     Route: 048
     Dates: start: 20040107
  4. COPEGUS [Suspect]
     Route: 048

REACTIONS (3)
  - DEAFNESS UNILATERAL [None]
  - TINNITUS [None]
  - VERTIGO [None]
